FAERS Safety Report 6532071-0 (Version None)
Quarter: 2010Q1

REPORT INFORMATION
  Report Type: 
  Country: None (occurrence: None)
  Receive Date: 20100108
  Receipt Date: 20091230
  Transmission Date: 20100710
  Serious: Yes (Death)
  Sender: FDA-Public Use
  Company Number: GXKR2009IN13944

PATIENT
  Age: 10 Year
  Sex: Female

DRUGS (4)
  1. DEXAMETHASONE [Suspect]
     Indication: T-CELL TYPE ACUTE LEUKAEMIA
     Route: 065
  2. VINCRISTINE (NGX) [Suspect]
     Indication: T-CELL TYPE ACUTE LEUKAEMIA
     Route: 065
  3. METHOTREXATE (NGX) [Suspect]
     Indication: T-CELL TYPE ACUTE LEUKAEMIA
     Route: 065
  4. ASPARAGINASE [Suspect]
     Indication: T-CELL TYPE ACUTE LEUKAEMIA
     Route: 065

REACTIONS (12)
  - CELLULITIS [None]
  - ENDOTRACHEAL INTUBATION [None]
  - EPISTAXIS [None]
  - FACE OEDEMA [None]
  - FATIGUE [None]
  - FUNGAL INFECTION [None]
  - LOCAL SWELLING [None]
  - MENTAL STATUS CHANGES [None]
  - NASAL CONGESTION [None]
  - SINUS OPERATION [None]
  - STRIDOR [None]
  - SWELLING FACE [None]
